FAERS Safety Report 5558730-4 (Version None)
Quarter: 2007Q4

REPORT INFORMATION
  Report Type: 
  Country: None (occurrence: None)
  Receive Date: 20071214
  Receipt Date: 20070906
  Transmission Date: 20080405
  Serious: No
  Sender: FDA-Public Use
  Company Number: US-ABBOTT-07P-163-0416477-00

PATIENT
  Sex: Female
  Weight: 70.37 kg

DRUGS (2)
  1. HUMIRA [Suspect]
     Indication: CROHN'S DISEASE
     Dosage: LOADING DOSE
     Route: 058
     Dates: start: 20070701, end: 20070701
  2. HUMIRA [Suspect]
     Route: 058

REACTIONS (4)
  - ALOPECIA [None]
  - ARTHRALGIA [None]
  - PYREXIA [None]
  - RECTAL HAEMORRHAGE [None]
